FAERS Safety Report 5388101-5 (Version None)
Quarter: 2007Q3

REPORT INFORMATION
  Report Type: 
  Country: None (occurrence: None)
  Receive Date: 20070716
  Receipt Date: 20061117
  Transmission Date: 20080115
  Serious: No
  Sender: FDA-Public Use
  Company Number: A0627789A

PATIENT
  Age: 44 Year
  Sex: Female

DRUGS (2)
  1. NICORETTE [Suspect]
  2. AMERICAN FARE NTS, UNSPECIFIED [Suspect]
     Route: 062

REACTIONS (8)
  - APPLICATION SITE URTICARIA [None]
  - DYSGEUSIA [None]
  - EUPHORIC MOOD [None]
  - ILL-DEFINED DISORDER [None]
  - INTENTIONAL DRUG MISUSE [None]
  - ORAL DISORDER [None]
  - PSYCHOMOTOR HYPERACTIVITY [None]
  - THINKING ABNORMAL [None]
